FAERS Safety Report 5669698-4 (Version None)
Quarter: 2008Q1

REPORT INFORMATION
  Report Type: 
  Country: None (occurrence: None)
  Receive Date: 20080317
  Receipt Date: 20080305
  Transmission Date: 20080703
  Serious: Yes (Other)
  Sender: FDA-Public Use
  Company Number: PHHY2008JP02726

PATIENT

DRUGS (1)
  1. SANOREX [Suspect]

REACTIONS (3)
  - DELUSION [None]
  - DRUG ABUSE [None]
  - HALLUCINATION [None]
